FAERS Safety Report 4737860-0 (Version None)
Quarter: 2005Q3

REPORT INFORMATION
  Report Type: 
  Country: None (occurrence: None)
  Receive Date: 20050809
  Receipt Date: 20050804
  Transmission Date: 20060218
  Serious: Yes (Other)
  Sender: FDA-Public Use
  Company Number: PHEH2005US08697

PATIENT
  Age: 13 Year
  Sex: Male

DRUGS (1)
  1. ELIDEL [Suspect]
     Route: 061

REACTIONS (1)
  - CELLULITIS [None]
